FAERS Safety Report 8461539-5 (Version None)
Quarter: 2012Q2

REPORT INFORMATION
  Report Type: 
  Country: None (occurrence: None)
  Receive Date: 20120625
  Receipt Date: 20120615
  Transmission Date: 20120825
  Serious: Yes (Other)
  Sender: FDA-Public Use
  Company Number: US-JNJFOC-20120609326

PATIENT
  Age: 8 Year
  Sex: Male
  Weight: 22.68 kg

DRUGS (6)
  1. CHILDREN'S ADVIL [Suspect]
     Indication: COUGH
     Dosage: EVERY 4 HOURS
     Route: 048
     Dates: start: 20120601, end: 20120608
  2. AZITHROMYCIN [Concomitant]
     Route: 048
     Dates: start: 20120608, end: 20120611
  3. CHILDREN'S MOTRIN [Suspect]
     Indication: PYREXIA
     Route: 048
     Dates: end: 20120501
  4. CHILDREN'S ADVIL [Suspect]
     Indication: UPPER RESPIRATORY TRACT INFECTION
     Dosage: EVERY 4 HOURS
     Route: 048
     Dates: start: 20120601, end: 20120608
  5. AZITHROMYCIN [Concomitant]
     Indication: UPPER RESPIRATORY TRACT INFECTION
     Route: 048
     Dates: start: 20120607
  6. CHILDREN'S ADVIL [Suspect]
     Indication: PYREXIA
     Dosage: EVERY 4 HOURS
     Route: 048
     Dates: start: 20120601, end: 20120608

REACTIONS (9)
  - ORAL MUCOSAL BLISTERING [None]
  - BLISTER [None]
  - RASH GENERALISED [None]
  - LIP SWELLING [None]
  - LIP PAIN [None]
  - INFECTION [None]
  - PYREXIA [None]
  - GINGIVAL PAIN [None]
  - INCORRECT DOSE ADMINISTERED [None]
